FAERS Safety Report 23056210 (Version 1)
Quarter: 2023Q4

REPORT INFORMATION
  Report Type: Spontaneous
  Country: PL (occurrence: PL)
  Receive Date: 20231011
  Receipt Date: 20231011
  Transmission Date: 20240110
  Serious: Yes (Hospitalization, Other)
  Sender: FDA-Public Use
  Company Number: PL-TEVA-2023-PL-2934154

PATIENT
  Age: 25 Year
  Sex: Female

DRUGS (6)
  1. METHOTREXATE [Suspect]
     Active Substance: METHOTREXATE
     Indication: Choriocarcinoma
     Dosage: 300 MG
     Route: 042
     Dates: start: 2022
  2. METHOTREXATE [Suspect]
     Active Substance: METHOTREXATE
     Dosage: AS A PART OF EMA-CO REGIMEN
     Route: 065
  3. VINCRISTINE [Suspect]
     Active Substance: VINCRISTINE
     Indication: Choriocarcinoma
     Dosage: AS A PART OF EMA-CO REGIMEN
     Route: 065
     Dates: start: 2022
  4. ACTINOMYCIN D [Suspect]
     Active Substance: DACTINOMYCIN
     Indication: Choriocarcinoma
     Dosage: AS A PART OF EMA-CO REGIMEN
     Route: 065
     Dates: start: 2022
  5. ETOPOSIDE [Suspect]
     Active Substance: ETOPOSIDE
     Indication: Choriocarcinoma
     Dosage: AS A PART OF EMA-CO REGIMEN
     Route: 065
     Dates: start: 2022
  6. CYCLOPHOSPHAMIDE [Suspect]
     Active Substance: CYCLOPHOSPHAMIDE
     Indication: Choriocarcinoma
     Dosage: AS A PART OF EMA-CO REGIMEN
     Route: 065
     Dates: start: 2022

REACTIONS (5)
  - Haematoma [Unknown]
  - Disease recurrence [Unknown]
  - Febrile neutropenia [Unknown]
  - Cerebral venous sinus thrombosis [Recovering/Resolving]
  - Respiratory distress [Unknown]

NARRATIVE: CASE EVENT DATE: 20220101
